FAERS Safety Report 8841661 (Version 1)
Quarter: 2012Q4

REPORT INFORMATION
  Report Type: Report from Study
  Country: AU (occurrence: AU)
  Receive Date: 20121015
  Receipt Date: 20121015
  Transmission Date: 20130627
  Serious: Yes (Death, Life-Threatening, Hospitalization)
  Sender: FDA-Public Use
  Company Number: AU-CELGENEUS-008-50794-12072113

PATIENT
  Age: 81 Year
  Sex: Male
  Weight: 79.1 kg

DRUGS (10)
  1. VIDAZA [Suspect]
     Indication: ACUTE MYELOID LEUKEMIA
     Dosage: 75 milligram/sq. meter
     Route: 065
     Dates: start: 20110829
  2. VIDAZA [Suspect]
     Dosage: 75 milligram/sq. meter
     Route: 065
     Dates: start: 20120528, end: 20120709
  3. UNSPECIFIED INGREDIENT [Suspect]
     Indication: ACUTE MYELOID LEUKEMIA
     Dosage: 30 Milligram
     Route: 065
     Dates: start: 20110902
  4. UNSPECIFIED INGREDIENT [Suspect]
     Dosage: 20 Milligram
     Route: 065
     Dates: start: 20120601, end: 20120709
  5. SERTRALINE [Concomitant]
     Indication: DEPRESSION
     Dosage: 200 Milligram
     Route: 048
  6. TRANEXAMIC ACID [Concomitant]
     Indication: PLATELET COUNT
     Dosage: 3 Gram
     Route: 048
  7. TRANEXAMIC ACID [Concomitant]
     Indication: BLEEDING
  8. PANTOPRAZOLE [Concomitant]
     Indication: GERD
     Dosage: 40 Milligram
     Route: 048
  9. ALLOPURINOL [Concomitant]
     Indication: TUMOR LYSIS SYNDROME
     Dosage: 300 Milligram
     Route: 048
  10. MEGACE [Concomitant]
     Indication: APPETITE IMPAIRED
     Dosage: 160 Milligram
     Route: 065

REACTIONS (16)
  - Acute myeloid leukaemia [Fatal]
  - Bronchitis [Not Recovered/Not Resolved]
  - Pyrexia [Not Recovered/Not Resolved]
  - Pleural effusion [None]
  - Vomiting [None]
  - Dehydration [None]
  - Haematuria [None]
  - Sepsis [None]
  - Influenza [None]
  - Pneumonia aspiration [None]
  - Bacteraemia [None]
  - General physical health deterioration [None]
  - Device related infection [None]
  - Dysphagia [None]
  - Depressed mood [None]
  - Depression [None]
